FAERS Safety Report 24962817 (Version 1)
Quarter: 2025Q1

REPORT INFORMATION
  Report Type: Spontaneous
  Country: US (occurrence: US)
  Receive Date: 20250213
  Receipt Date: 20250213
  Transmission Date: 20250408
  Serious: No
  Sender: SANOFI AVENTIS
  Company Number: US-SA-2025SA041260

PATIENT
  Sex: Female

DRUGS (11)
  1. DUPIXENT [Suspect]
     Active Substance: DUPILUMAB
     Indication: Dermatitis atopic
     Dosage: 300 MG, QOW
     Route: 058
  2. IRON [Concomitant]
     Active Substance: IRON
  3. FERRIC SULFATE [Concomitant]
     Active Substance: FERRIC SULFATE
  4. FUROSEMIDE [Concomitant]
     Active Substance: FUROSEMIDE
  5. IRBESARTAN [Concomitant]
     Active Substance: IRBESARTAN
  6. LOVASTATIN [Concomitant]
     Active Substance: LOVASTATIN
  7. MIRALAX [Concomitant]
     Active Substance: POLYETHYLENE GLYCOL 3350
  8. NASACORT [Concomitant]
     Active Substance: TRIAMCINOLONE ACETONIDE
  9. OMEPRAZOLE [Concomitant]
     Active Substance: OMEPRAZOLE
  10. TRAMADOL HCL [Concomitant]
     Active Substance: TRAMADOL HYDROCHLORIDE
  11. VITAMIN D NOS [Concomitant]
     Active Substance: CHOLECALCIFEROL\ERGOCALCIFEROL

REACTIONS (1)
  - Skin exfoliation [Unknown]
